FAERS Safety Report 19487192 (Version 2)
Quarter: 2021Q3

REPORT INFORMATION
  Report Type: Spontaneous
  Country: IT (occurrence: IT)
  Receive Date: 20210702
  Receipt Date: 20210730
  Transmission Date: 20211014
  Serious: Yes (Other)
  Sender: FDA-Public Use
  Company Number: IT-ALIMERA SCIENCES LIMITED-IT-A16013-20-004226

PATIENT

DRUGS (1)
  1. ILUVIEN [Suspect]
     Active Substance: FLUOCINOLONE ACETONIDE
     Indication: PRODUCT USED FOR UNKNOWN INDICATION
     Dosage: 0.25 MICROGRAM, QD?RIGHT EYE
     Route: 031
     Dates: start: 20180207

REACTIONS (5)
  - Intraocular pressure increased [Unknown]
  - Iris operation [Recovered/Resolved]
  - Sclerectomy [Recovered/Resolved]
  - Eye pain [Unknown]
  - Iris adhesions [Unknown]

NARRATIVE: CASE EVENT DATE: 20190101
